FAERS Safety Report 6371483-5 (Version None)
Quarter: 2009Q3

REPORT INFORMATION
  Report Type: 
  Country: None (occurrence: None)
  Receive Date: 20090923
  Receipt Date: 20071009
  Transmission Date: 20100115
  Serious: Yes (Other)
  Sender: FDA-Public Use
  Company Number: US-ASTRAZENECA-2007UW09070

PATIENT
  Age: 12448 Day
  Sex: Male
  Weight: 107.5 kg

DRUGS (11)
  1. SEROQUEL [Suspect]
     Indication: SCHIZOPHRENIA
     Dosage: 300 MG,2-3 TABLETS DAILY, 700 MG
     Route: 048
     Dates: start: 20030502
  2. GEODON [Concomitant]
  3. XANAX [Concomitant]
     Dosage: 2-4 MG
     Dates: start: 20030307
  4. TIZANIDINE HCL [Concomitant]
     Dosage: 4MG BID TO TID, 4 MG 2 DAILY
     Route: 048
     Dates: start: 20050301
  5. AMBIEN [Concomitant]
     Dosage: 10 MG AT BEDTIME AS NEEDED
     Dates: start: 20050301
  6. LOPRESSOR [Concomitant]
     Dates: start: 20061121
  7. ACTOS [Concomitant]
     Dates: start: 20061121
  8. ASPIRIN [Concomitant]
     Dates: start: 20050301
  9. PLAVIX [Concomitant]
     Route: 048
     Dates: start: 20061121
  10. LANTUS [Concomitant]
     Dosage: 20 AT NIGHT
     Dates: start: 20061121
  11. EFFEXOR [Concomitant]
     Dates: start: 20030502

REACTIONS (7)
  - DIABETES MELLITUS [None]
  - GLYCOSURIA [None]
  - HYPERGLYCAEMIA [None]
  - INSULIN-REQUIRING TYPE 2 DIABETES MELLITUS [None]
  - RESTLESS LEGS SYNDROME [None]
  - TARDIVE DYSKINESIA [None]
  - TYPE 2 DIABETES MELLITUS [None]
